FAERS Safety Report 5933341-7 (Version None)
Quarter: 2008Q4

REPORT INFORMATION
  Report Type: 
  Country: None (occurrence: None)
  Receive Date: 20081028
  Receipt Date: 20081016
  Transmission Date: 20090506
  Serious: Yes (Other)
  Sender: FDA-Public Use
  Company Number: US-PFIZER INC-2008088759

PATIENT
  Sex: Female
  Weight: 68.5 kg

DRUGS (2)
  1. CHANTIX [Suspect]
     Indication: SMOKING CESSATION THERAPY
     Dates: start: 20080901, end: 20081016
  2. XANAX [Concomitant]
     Indication: PANIC ATTACK

REACTIONS (11)
  - AGGRESSION [None]
  - AGITATION [None]
  - ANGER [None]
  - DYSGEUSIA [None]
  - FEELING ABNORMAL [None]
  - IRRITABILITY [None]
  - NERVOUSNESS [None]
  - SPEECH DISORDER [None]
  - STRESS [None]
  - THINKING ABNORMAL [None]
  - UNEVALUABLE EVENT [None]
